FAERS Safety Report 23466570 (Version 3)
Quarter: 2024Q3

REPORT INFORMATION
  Report Type: Spontaneous
  Country: US (occurrence: US)
  Receive Date: 20240201
  Receipt Date: 20240930
  Transmission Date: 20241017
  Serious: No
  Sender: EISAI
  Company Number: US-Eisai-EC-2024-156915

PATIENT
  Age: 79 Year
  Sex: Male

DRUGS (1)
  1. LEQEMBI [Suspect]
     Active Substance: LECANEMAB-IRMB
     Indication: Dementia Alzheimer^s type
     Dosage: DOSE UNKNOWN
     Route: 042
     Dates: start: 20231130, end: 20240801

REACTIONS (9)
  - Aphasia [Recovering/Resolving]
  - Head discomfort [Not Recovered/Not Resolved]
  - Chills [Unknown]
  - Pyrexia [Recovered/Resolved]
  - Pruritus [Unknown]
  - Clumsiness [Unknown]
  - Confusional state [Unknown]
  - Cognitive disorder [Recovering/Resolving]
  - Depressive symptom [Unknown]

NARRATIVE: CASE EVENT DATE: 20240101
